FAERS Safety Report 10728655 (Version 2)
Quarter: 2016Q2

REPORT INFORMATION
  Report Type: Spontaneous
  Country: US (occurrence: US)
  Receive Date: 20150122
  Receipt Date: 20160503
  Transmission Date: 20160815
  Serious: No
  Sender: FDA-Public Use
  Company Number: US-TEVA-520355USA

PATIENT
  Sex: Male

DRUGS (1)
  1. ATENOLOL. [Suspect]
     Active Substance: ATENOLOL
     Indication: HYPERTENSION
     Route: 065

REACTIONS (1)
  - Dysgeusia [Not Recovered/Not Resolved]

NARRATIVE: CASE EVENT DATE: 201409
